FAERS Safety Report 9226802 (Version 2)
Quarter: 2013Q2

REPORT INFORMATION
  Report Type: Spontaneous
  Country: US (occurrence: US)
  Receive Date: 20130412
  Receipt Date: 20130515
  Transmission Date: 20140414
  Serious: Yes (Hospitalization)
  Sender: FDA-Public Use
  Company Number: US-BAYER-2013-045151

PATIENT
  Age: 46 Year
  Sex: Female
  Weight: 81.63 kg

DRUGS (11)
  1. YAZ [Suspect]
     Dosage: UNK
     Dates: start: 2009, end: 2010
  2. YASMIN [Suspect]
     Dosage: UNK
     Dates: start: 2009, end: 2010
  3. OCELLA [Suspect]
     Dosage: UNK
     Dates: start: 2009, end: 2010
  4. BACLOFEN [Concomitant]
     Indication: MIGRAINE
     Dosage: 10 MG, UNK
  5. VERAPAMIL [Concomitant]
     Dosage: 240 MG, UNK
  6. TOPIRAMATE [Concomitant]
     Indication: MIGRAINE
     Dosage: 100 MG, UNK
  7. ALPRAZOLAM [Concomitant]
     Indication: ANXIETY
     Dosage: 2 MG, UNK
  8. ZARAH [Suspect]
  9. XANAX [Concomitant]
  10. TOPAMAX [Concomitant]
  11. TYLENOL [CHLORPHENAM MAL,DEXTROMET HBR,PARACET,PSEUDOEPH HCL] [Concomitant]
     Dosage: UNK, PRN

REACTIONS (8)
  - Pulmonary embolism [None]
  - Abdominal pain [None]
  - Injury [None]
  - Pain [None]
  - General physical health deterioration [None]
  - Anxiety [None]
  - Emotional distress [None]
  - Pain [None]
